FAERS Safety Report 7897006-7 (Version None)
Quarter: 2011Q4

REPORT INFORMATION
  Report Type: 
  Country: None (occurrence: None)
  Receive Date: 20111103
  Receipt Date: 20111017
  Transmission Date: 20120403
  Serious: Yes (Other)
  Sender: FDA-Public Use
  Company Number: 78293

PATIENT
  Sex: Male

DRUGS (1)
  1. DEEP HEATING RUB, MENTHOL 8%, METHYL SALICYLATE 30% [Suspect]
     Indication: PAIN
     Dosage: TOPICAL, 1X
     Route: 061
     Dates: start: 20111015

REACTIONS (2)
  - APPLICATION SITE BURN [None]
  - APPLICATION SITE VESICLES [None]
